FAERS Safety Report 8399875-3 (Version None)
Quarter: 2012Q2

REPORT INFORMATION
  Report Type: 
  Country: None (occurrence: None)
  Receive Date: 20120531
  Receipt Date: 20120521
  Transmission Date: 20120825
  Serious: Yes (Other)
  Sender: FDA-Public Use
  Company Number: JP-ELI_LILLY_AND_COMPANY-JP201205008254

PATIENT
  Age: 88 Year
  Sex: Female

DRUGS (1)
  1. FORTEO [Suspect]
     Dosage: UNK
     Route: 058
     Dates: start: 20120502

REACTIONS (4)
  - FALL [None]
  - DEEP VEIN THROMBOSIS [None]
  - FRACTURE [None]
  - BLOOD ALKALINE PHOSPHATASE INCREASED [None]
